FAERS Safety Report 5336417-0 (Version None)
Quarter: 2007Q2

REPORT INFORMATION
  Report Type: 
  Country: None (occurrence: None)
  Receive Date: 20070523
  Receipt Date: 20070510
  Transmission Date: 20071010
  Serious: Yes (Hospitalization)
  Sender: FDA-Public Use
  Company Number: 16401

PATIENT
  Age: 32 Year
  Sex: Male

DRUGS (2)
  1. VINCRISTINE [Suspect]
     Indication: BURKITT'S LYMPHOMA RECURRENT
     Dosage: 1 MG   FREQ UNK   IT
     Route: 038
  2. LACTATED RINGER'S [Concomitant]

REACTIONS (14)
  - ANAL SPHINCTER ATONY [None]
  - ANORECTAL DISORDER [None]
  - ARTHROPATHY [None]
  - DYSAESTHESIA [None]
  - HYPOAESTHESIA [None]
  - MUSCLE DISORDER [None]
  - NERVE DEGENERATION [None]
  - PARAPARESIS [None]
  - POLYNEUROPATHY [None]
  - RESPIRATORY ALKALOSIS [None]
  - SENSORIMOTOR DISORDER [None]
  - SENSORY LOSS [None]
  - URINARY RETENTION [None]
  - WRONG DRUG ADMINISTERED [None]
